FAERS Safety Report 4365307-5 (Version None)
Quarter: 2004Q2

REPORT INFORMATION
  Report Type: 
  Country: None (occurrence: None)
  Receive Date: 20040521
  Receipt Date: 20040506
  Transmission Date: 20050107
  Serious: Yes (Death)
  Sender: FDA-Public Use
  Company Number: 2004-BP-01436NB

PATIENT
  Age: 80 Year
  Sex: Female

DRUGS (2)
  1. MOBIC [Suspect]
     Indication: BACK PAIN
     Route: 048
     Dates: start: 20040113
  2. ELCITONIN (ELCATONIN) (AM) [Suspect]
     Indication: OSTEOPOROSIS
     Route: 030
     Dates: start: 20040126

REACTIONS (3)
  - BACK PAIN [None]
  - COMPRESSION FRACTURE [None]
  - SUDDEN DEATH [None]
